FAERS Safety Report 19133540 (Version 1)
Quarter: 2021Q2

REPORT INFORMATION
  Report Type: Spontaneous
  Country: US (occurrence: US)
  Receive Date: 20210413
  Receipt Date: 20210413
  Transmission Date: 20210717
  Serious: Yes (Hospitalization)
  Sender: FDA-Public Use
  Company Number: None

PATIENT
  Age: 17 Year
  Sex: Male

DRUGS (30)
  1. AZELASTINE. [Concomitant]
     Active Substance: AZELASTINE HYDROCHLORIDE
  2. CALCIUM 500+D [Concomitant]
     Active Substance: CALCIUM\VITAMIN D
  3. CAPTOPRIL. [Concomitant]
     Active Substance: CAPTOPRIL
  4. FLUTICASONE SPR [Concomitant]
  5. OXCARBEZEPIN [Concomitant]
  6. URO?MAG [Concomitant]
  7. AMOXICILLIN. [Concomitant]
     Active Substance: AMOXICILLIN
  8. CENTRUM [Concomitant]
     Active Substance: VITAMINS
  9. PREDNISONE. [Concomitant]
     Active Substance: PREDNISONE
  10. TACROLIMUS. [Concomitant]
     Active Substance: TACROLIMUS
  11. CEPHALEXIN. [Concomitant]
     Active Substance: CEPHALEXIN
  12. DIGOXIN. [Concomitant]
     Active Substance: DIGOXIN
  13. FAMOTIDINE. [Concomitant]
     Active Substance: FAMOTIDINE
  14. FUROSEMIDE. [Concomitant]
     Active Substance: FUROSEMIDE
  15. MYCOPHENOLAT [Concomitant]
     Active Substance: MYCOPHENOLATE MOFETIL
  16. POLYETH GLYC [Concomitant]
     Active Substance: POLYETHYLENE GLYCOLS
  17. STIMULANT [Concomitant]
     Active Substance: UNSPECIFIED INGREDIENT
  18. MAGNESIUM?OX [Concomitant]
  19. SNZ.TNO DS [Concomitant]
  20. SILDENAFIL 20MG TAB [Suspect]
     Active Substance: SILDENAFIL
     Indication: PULMONARY ARTERIAL HYPERTENSION
     Dosage: 40MG (2 TABS) TID PO
     Route: 048
     Dates: start: 20190214
  21. VALGANICICLOV [Concomitant]
  22. ATORVASTATIN [Concomitant]
     Active Substance: ATORVASTATIN
  23. B?COMPL/B?12 [Concomitant]
  24. CETIRIZINE [Concomitant]
     Active Substance: CETIRIZINE HYDROCHLORIDE
  25. LEVALBUTEROL NEB [Concomitant]
  26. ARIPIPRAZOLE. [Concomitant]
     Active Substance: ARIPIPRAZOLE
  27. PAIN RELIEVER [Concomitant]
  28. WARFARIN [Concomitant]
     Active Substance: WARFARIN
  29. ENALARPIL [Concomitant]
  30. NYSTATIN. [Concomitant]
     Active Substance: NYSTATIN

REACTIONS (1)
  - Heart transplant [None]

NARRATIVE: CASE EVENT DATE: 20210309
